FAERS Safety Report 9659351 (Version 1)
Quarter: 2013Q4

REPORT INFORMATION
  Report Type: Spontaneous
  Country: GB (occurrence: GB)
  Receive Date: 20131031
  Receipt Date: 20131031
  Transmission Date: 20140711
  Serious: Yes (Other)
  Sender: FDA-Public Use
  Company Number: GB-JNJFOC-20131015564

PATIENT
  Age: 47 Year
  Sex: Female
  Weight: 69 kg

DRUGS (2)
  1. INFLIXIMAB, RECOMBINANT [Suspect]
     Indication: INFLAMMATORY BOWEL DISEASE
     Route: 042
     Dates: start: 20130111, end: 20130409
  2. MESALAZINE [Concomitant]
     Route: 065

REACTIONS (2)
  - Demyelination [Not Recovered/Not Resolved]
  - Pulmonary embolism [Unknown]
